FAERS Safety Report 9266145 (Version 2)
Quarter: 2013Q3

REPORT INFORMATION
  Report Type: Report from Study
  Country: IT (occurrence: IT)
  Receive Date: 20130502
  Receipt Date: 20130805
  Transmission Date: 20140515
  Serious: Yes (Death, Other)
  Sender: FDA-Public Use
  Company Number: IT-ROCHE-1216476

PATIENT
  Sex: 0

DRUGS (3)
  1. TRETINOIN [Suspect]
     Indication: ACUTE PROMYELOCYTIC LEUKAEMIA
     Dosage: 2 WEEKS ON AND 2 WEEKS OFF FOR A TOTAL OF 7 COURSES
     Route: 065
  2. ARSENIC TRIOXIDE [Suspect]
     Indication: ACUTE PROMYELOCYTIC LEUKAEMIA
     Dosage: 5 DAYS PER WEEK, 4 WEEKS ON 4 WEEKS OFF, FOR A TOTAL OF 4 COURSES
     Route: 065
  3. IDARUBICIN [Suspect]
     Indication: ACUTE PROMYELOCYTIC LEUKAEMIA
     Route: 065

REACTIONS (8)
  - Shock haemorrhagic [Fatal]
  - Pulmonary embolism [Fatal]
  - Bronchopneumonia [Fatal]
  - H1N1 influenza [Fatal]
  - Neutropenia [Unknown]
  - Thrombocytopenia [Unknown]
  - Retinoic acid syndrome [Unknown]
  - Liver disorder [Unknown]
